FAERS Safety Report 6364882-9 (Version None)
Quarter: 2009Q3

REPORT INFORMATION
  Report Type: 
  Country: None (occurrence: None)
  Receive Date: 20090919
  Receipt Date: 20090803
  Transmission Date: 20100115
  Serious: No
  Sender: FDA-Public Use
  Company Number: US-ABBOTT-09P-163-0588709-00

PATIENT
  Sex: Female
  Weight: 65.83 kg

DRUGS (3)
  1. HUMIRA [Suspect]
     Indication: CROHN'S DISEASE
     Dosage: ONCE ON DAY 1
     Dates: start: 20090605, end: 20090605
  2. HUMIRA [Suspect]
     Dosage: ONCE ON DAY 15
  3. HUMIRA [Suspect]
     Dosage: EOW STARTING ON DAY 29

REACTIONS (1)
  - DRUG DOSE OMISSION [None]
